FAERS Safety Report 11506024 (Version 1)
Quarter: 2015Q3

REPORT INFORMATION
  Report Type: Spontaneous
  Country: US (occurrence: US)
  Receive Date: 20150915
  Receipt Date: 20150915
  Transmission Date: 20151125
  Serious: Yes (Hospitalization)
  Sender: FDA-Public Use
  Company Number: US-ROCHE-793264

PATIENT
  Age: 62 Year
  Sex: Female

DRUGS (8)
  1. GLUCOPHAGE [Concomitant]
     Active Substance: METFORMIN HYDROCHLORIDE
     Indication: TYPE 2 DIABETES MELLITUS
     Dosage: EVENING MEAL
     Route: 065
  2. RIBAVIRIN. [Suspect]
     Active Substance: RIBAVIRIN
     Indication: CHRONIC HEPATITIS C
     Dosage: DIVEDED DOSES ORALLY FOR 24 WEEK
     Route: 048
  3. PEGASYS [Suspect]
     Active Substance: PEGINTERFERON ALFA-2A
     Indication: CHRONIC HEPATITIS C
     Route: 058
  4. RIBAVIRIN. [Suspect]
     Active Substance: RIBAVIRIN
     Dosage: FOR 2 WEEKS  (DOSE DECREASED).
     Route: 048
  5. PEGASYS [Suspect]
     Active Substance: PEGINTERFERON ALFA-2A
     Route: 058
  6. RIBAVIRIN. [Suspect]
     Active Substance: RIBAVIRIN
     Dosage: DOSE: 200 MG IN AM AND 2000 MG IN PM DOSE LOWERED.
     Route: 048
  7. RIBAVIRIN. [Suspect]
     Active Substance: RIBAVIRIN
     Route: 048
  8. NORVASC [Concomitant]
     Active Substance: AMLODIPINE BESYLATE
     Indication: HYPERTENSION
     Dosage: DOSE: 2 1/2 MG TWICE DAILY
     Route: 065

REACTIONS (6)
  - Dyspnoea [Unknown]
  - Memory impairment [Unknown]
  - Back pain [Unknown]
  - Cough [Recovered/Resolved]
  - Haemoglobin decreased [Unknown]
  - Chest pain [Unknown]

NARRATIVE: CASE EVENT DATE: 20110724
